FAERS Safety Report 17566012 (Version 1)
Quarter: 2020Q1

REPORT INFORMATION
  Report Type: Spontaneous
  Country: US (occurrence: US)
  Receive Date: 20200320
  Receipt Date: 20200320
  Transmission Date: 20200409
  Serious: Yes (Death)
  Sender: FDA-Public Use
  Company Number: None

PATIENT
  Age: 86 Year
  Sex: Male
  Weight: 81.9 kg

DRUGS (12)
  1. PRILOSEC [Concomitant]
     Active Substance: OMEPRAZOLE MAGNESIUM
  2. TYLENOL [Concomitant]
     Active Substance: ACETAMINOPHEN
  3. BYSTOLIC 5 MG [Concomitant]
  4. IBUPROFEN 400 MG [Concomitant]
     Active Substance: IBUPROFEN
  5. DOCUSATE SODIUM 100 MG [Concomitant]
  6. OXYCODONE 5 MG [Concomitant]
     Active Substance: OXYCODONE
  7. POTASSIUM CHLORIDE. [Concomitant]
     Active Substance: POTASSIUM CHLORIDE
  8. OXYBUTININ [Concomitant]
     Active Substance: OXYBUTYNIN
  9. ZOLPIDEM TARTRATE 10 MG [Concomitant]
     Active Substance: ZOLPIDEM TARTRATE
  10. ERLEADA [Suspect]
     Active Substance: APALUTAMIDE
     Indication: PROSTATE CANCER
     Route: 048
     Dates: start: 20200212, end: 20200320
  11. TRAMADOL. [Concomitant]
     Active Substance: TRAMADOL
  12. AMLODIPINE [Concomitant]
     Active Substance: AMLODIPINE BESYLATE

REACTIONS (1)
  - Death [None]

NARRATIVE: CASE EVENT DATE: 20200320
